FAERS Safety Report 10313540 (Version 1)
Quarter: 2014Q3

REPORT INFORMATION
  Report Type: Spontaneous
  Country: US (occurrence: None)
  Receive Date: 20140716
  Receipt Date: 20140716
  Transmission Date: 20150326
  Serious: Yes (Other)
  Sender: FDA-Public Use
  Company Number: 2014SA092350

PATIENT
  Age: 40 Year
  Sex: Female

DRUGS (1)
  1. FLEXALL PLUS [Suspect]
     Active Substance: CAMPHOR (SYNTHETIC)\MENTHOL\METHYL SALICYLATE

REACTIONS (2)
  - Blister [None]
  - Application site pain [None]
